FAERS Safety Report 6142235-6 (Version None)
Quarter: 2009Q2

REPORT INFORMATION
  Report Type: 
  Country: None (occurrence: None)
  Receive Date: 20090403
  Receipt Date: 20080205
  Transmission Date: 20091009
  Serious: Yes (Death, Hospitalization, Other)
  Sender: FDA-Public Use
  Company Number: US-ASTRAZENECA-2006UW21591

PATIENT
  Age: 19891 Day
  Sex: Female

DRUGS (12)
  1. SEROQUEL [Suspect]
     Dosage: 25 TO 400 MG
     Route: 048
     Dates: start: 19990107, end: 20060228
  2. ZYPREXA [Concomitant]
  3. DOXEPIN HCL [Concomitant]
  4. AMARYL [Concomitant]
  5. SPIRONOLACTONE [Concomitant]
  6. PREMARIN [Concomitant]
  7. EFFEXOR [Concomitant]
  8. SERZONE [Concomitant]
  9. WELLBUTRIN [Concomitant]
  10. CARAFATE [Concomitant]
  11. GLUCOTROL [Concomitant]
  12. ZEBETA [Concomitant]

REACTIONS (23)
  - ACUTE PSYCHOSIS [None]
  - AGITATION [None]
  - ALTERED STATE OF CONSCIOUSNESS [None]
  - ASCITES [None]
  - CHRONIC OBSTRUCTIVE PULMONARY DISEASE [None]
  - CONSTIPATION [None]
  - CYSTITIS [None]
  - DEATH [None]
  - DEPRESSION [None]
  - DIABETES MELLITUS [None]
  - HAEMATEMESIS [None]
  - HALLUCINATION, AUDITORY [None]
  - HYPERGLYCAEMIA [None]
  - HYPERTENSION [None]
  - HYPOMAGNESAEMIA [None]
  - HYPONATRAEMIA [None]
  - MOOD SWINGS [None]
  - PARANOIA [None]
  - POLYDIPSIA [None]
  - SPLENOMEGALY [None]
  - SUICIDAL IDEATION [None]
  - THROMBOCYTOPENIA [None]
  - WOUND [None]
